FAERS Safety Report 7126491-3 (Version None)
Quarter: 2010Q4

REPORT INFORMATION
  Report Type: 
  Country: None (occurrence: None)
  Receive Date: 20101129
  Receipt Date: 20101103
  Transmission Date: 20110411
  Serious: No
  Sender: FDA-Public Use
  Company Number: US-B.I. PHARMACEUTICALS,INC./RIDGEFIELD-2010-BP-13252BP

PATIENT
  Sex: Female

DRUGS (1)
  1. METACAM ORAL SUSPENSION [Suspect]
     Route: 031
     Dates: start: 20101103

REACTIONS (3)
  - ACCIDENTAL EXPOSURE [None]
  - DRY EYE [None]
  - EYE IRRITATION [None]
